FAERS Safety Report 19007381 (Version 1)
Quarter: 2021Q1

REPORT INFORMATION
  Report Type: Spontaneous
  Country: US (occurrence: US)
  Receive Date: 20210312
  Receipt Date: 20210312
  Transmission Date: 20210420
  Serious: Yes (Death)
  Sender: FDA-Public Use
  Company Number: None

PATIENT
  Age: 81 Year
  Sex: Male

DRUGS (5)
  1. MYFORTIC [Concomitant]
     Active Substance: MYCOPHENOLATE SODIUM
  2. RANITIDINE. [Concomitant]
     Active Substance: RANITIDINE
  3. SIMVASTATIN. [Concomitant]
     Active Substance: SIMVASTATIN
  4. PREDNISONE. [Concomitant]
     Active Substance: PREDNISONE
  5. TACROLIMUS 1MG [Suspect]
     Active Substance: TACROLIMUS
     Indication: RENAL TRANSPLANT
     Route: 048
     Dates: start: 20131227, end: 20210311

REACTIONS (1)
  - Death [None]

NARRATIVE: CASE EVENT DATE: 20210311
